FAERS Safety Report 8829482 (Version 2)
Quarter: 2012Q4

REPORT INFORMATION
  Report Type: 
  Country: US (occurrence: US)
  Receive Date: 20121008
  Receipt Date: 20121107
  Transmission Date: 20130627
  Serious: Yes (Life-Threatening)
  Sender: FDA-Public Use
  Company Number: US-TEVA-337128USA

PATIENT
  Age: 71 Year
  Sex: Female

DRUGS (4)
  1. QVAR [Suspect]
     Indication: ASTHMA
  2. QVAR [Suspect]
     Indication: COUGH
  3. QVAR [Suspect]
     Indication: RHINORRHOEA
  4. QVAR [Suspect]
     Indication: DYSPNOEA

REACTIONS (4)
  - Dyspnoea [Unknown]
  - Cough [Unknown]
  - Rhinorrhoea [Unknown]
  - Drug effect decreased [Unknown]
